FAERS Safety Report 9521701 (Version 1)
Quarter: 2013Q1

REPORT INFORMATION
  Report Type: Spontaneous
  Country: US (occurrence: None)
  Receive Date: 20130305
  Receipt Date: 20130305
  Transmission Date: 20140127
  Serious: Yes (Other)
  Sender: FDA-Public Use
  Company Number: 163-21880-12072828

PATIENT
  Age: 54 Year
  Sex: Female

DRUGS (4)
  1. REVLIMID (LENALIDOMIDE) (25 MILLIGRAM, CAPSULES) [Suspect]
     Indication: PLASMA CELL MYELOMA
     Dosage: 14 IN 14 D
     Route: 048
     Dates: start: 20120710
  2. DEXAMETHASONE (DEXAMETHASONE) (UNNOWN) [Concomitant]
  3. FUROSEMIDE (FUROSEMIDE) (UNKNOWN) [Concomitant]
  4. OMEPRAZOLE (OMEPRAZOLE) (UNKNOWN) [Concomitant]

REACTIONS (1)
  - Hypoaesthesia [None]
